FAERS Safety Report 6303714-1 (Version None)
Quarter: 2009Q3

REPORT INFORMATION
  Report Type: 
  Country: None (occurrence: None)
  Receive Date: 20090807
  Receipt Date: 20090807
  Transmission Date: 20100115
  Serious: Yes (Life-Threatening, Other)
  Sender: FDA-Public Use
  Company Number: None

PATIENT
  Age: 63 Year
  Sex: Female

DRUGS (1)
  1. SYMBICORT [Suspect]
     Indication: ASTHMA PROPHYLAXIS
     Dosage: 1 PUFF 2X'S DAY
     Dates: start: 20090720, end: 20090728

REACTIONS (13)
  - ABDOMINAL DISCOMFORT [None]
  - ASTHMA [None]
  - BACTERIAL INFECTION [None]
  - DIZZINESS [None]
  - DYSPNOEA [None]
  - GASTROINTESTINAL DISORDER [None]
  - HEADACHE [None]
  - LIP SWELLING [None]
  - NAUSEA [None]
  - PAIN [None]
  - PAIN IN EXTREMITY [None]
  - SWELLING FACE [None]
  - VIRAL INFECTION [None]
